FAERS Safety Report 7169841-4 (Version None)
Quarter: 2010Q4

REPORT INFORMATION
  Report Type: 
  Country: None (occurrence: None)
  Receive Date: 20101217
  Receipt Date: 20101206
  Transmission Date: 20110411
  Serious: Yes (Hospitalization, Other)
  Sender: FDA-Public Use
  Company Number: PHHY2010BR54947

PATIENT
  Sex: Female

DRUGS (1)
  1. FORASEQ [Suspect]
     Indication: ASTHMA
     Dosage: UNK

REACTIONS (13)
  - ASTHENIA [None]
  - ASTHMA [None]
  - BLOOD PRESSURE ABNORMAL [None]
  - CHEST PAIN [None]
  - COLD SWEAT [None]
  - COUGH [None]
  - FATIGUE [None]
  - HEADACHE [None]
  - HYPERTENSION [None]
  - PAIN [None]
  - SWELLING [None]
  - THROAT IRRITATION [None]
  - TREATMENT NONCOMPLIANCE [None]
